FAERS Safety Report 4744644-6 (Version None)
Quarter: 2005Q3

REPORT INFORMATION
  Report Type: 
  Country: None (occurrence: None)
  Receive Date: 20050812
  Receipt Date: 20050812
  Transmission Date: 20060218
  Serious: Yes (Life-Threatening, Hospitalization)
  Sender: FDA-Public Use
  Company Number: None

PATIENT
  Age: 50 Year
  Sex: Female

DRUGS (13)
  1. XELODA [Suspect]
     Indication: BREAST CANCER METASTATIC
     Dosage: 750MG  TWICE DAILY  ORAL
     Route: 048
     Dates: start: 20050101, end: 20050508
  2. ZANTAC [Concomitant]
  3. EFFEXOR [Concomitant]
  4. NEURONTIN [Concomitant]
  5. SYNTHROID [Concomitant]
  6. ALLEGRA [Concomitant]
  7. CALCIUM CARBONATE [Concomitant]
  8. OXYCONTIN [Concomitant]
  9. PERCOCET [Concomitant]
  10. CLINDAMYCIN [Concomitant]
  11. DOXYCYCLINE [Concomitant]
  12. NORTRIPTYLINE HCL [Concomitant]
  13. MIDRIN [Concomitant]

REACTIONS (8)
  - ABDOMINAL PAIN [None]
  - BLOOD PRESSURE DECREASED [None]
  - FALL [None]
  - HEART RATE INCREASED [None]
  - NAUSEA [None]
  - PANCREATITIS ACUTE [None]
  - SYNCOPE [None]
  - VOMITING [None]
